FAERS Safety Report 16236900 (Version 1)
Quarter: 2019Q2

REPORT INFORMATION
  Report Type: Report from Study
  Country: IT (occurrence: IT)
  Receive Date: 20190425
  Receipt Date: 20190425
  Transmission Date: 20190711
  Serious: Yes (Hospitalization, Other)
  Sender: FDA-Public Use
  Company Number: IT-TEVA-2019-IT-1040705

PATIENT
  Age: 82 Year
  Sex: Female

DRUGS (10)
  1. ZOFENOPRIL [Suspect]
     Active Substance: ZOFENOPRIL
     Route: 065
  2. METOPROLOL. [Concomitant]
     Active Substance: METOPROLOL
  3. CLOPIDOGREL [Concomitant]
     Active Substance: CLOPIDOGREL BISULFATE
  4. LANSOPRAZOLE. [Concomitant]
     Active Substance: LANSOPRAZOLE
  5. ASPIRIN. [Concomitant]
     Active Substance: ASPIRIN
  6. METFORMIN [Suspect]
     Active Substance: METFORMIN HYDROCHLORIDE
     Indication: TYPE 2 DIABETES MELLITUS
     Dosage: 2550 MILLIGRAM DAILY;
  7. AMLODIPINE [Concomitant]
     Active Substance: AMLODIPINE BESYLATE
  8. ENOXAPARIN [Concomitant]
     Active Substance: ENOXAPARIN
  9. FUROSEMIDE. [Concomitant]
     Active Substance: FUROSEMIDE
  10. POTASSIUM CANRENOATE [Concomitant]
     Active Substance: CANRENOATE POTASSIUM

REACTIONS (4)
  - Lactic acidosis [Recovering/Resolving]
  - Toxicity to various agents [Recovering/Resolving]
  - Acute kidney injury [Recovering/Resolving]
  - Product prescribing error [Unknown]
